FAERS Safety Report 13295595 (Version 5)
Quarter: 2017Q2

REPORT INFORMATION
  Report Type: Report from Study
  Country: US (occurrence: BR)
  Receive Date: 20170303
  Receipt Date: 20170609
  Transmission Date: 20170830
  Serious: Yes (Life-Threatening, Hospitalization, Other)
  Sender: FDA-Public Use
  Company Number: US-SUNOVION-2017SUN000898

PATIENT
  Sex: Male
  Weight: 117 kg

DRUGS (2)
  1. INDACATEROL AND GLYCOPYRROLATE [Suspect]
     Active Substance: GLYCOPYRROLATE\INDACATEROL MALEATE
     Indication: PRODUCT USED FOR UNKNOWN INDICATION
     Dosage: 1 DF, QD (0.11/0.05 MG)
     Route: 055
  2. FLUIR [Concomitant]
     Active Substance: FORMOTEROL FUMARATE
     Dosage: UNKNOWN
     Route: 065

REACTIONS (9)
  - Mobility decreased [Unknown]
  - Weight decreased [Unknown]
  - Lung neoplasm [Unknown]
  - Lung disorder [Unknown]
  - Malaise [Unknown]
  - Metastases to central nervous system [Unknown]
  - Condition aggravated [Unknown]
  - Infection [Unknown]
  - Apparent death [Recovering/Resolving]
